FAERS Safety Report 16207917 (Version 3)
Quarter: 2019Q4

REPORT INFORMATION
  Report Type: Spontaneous
  Country: US (occurrence: US)
  Receive Date: 20190417
  Receipt Date: 20191007
  Transmission Date: 20200122
  Serious: No
  Sender: FDA-Public Use
  Company Number: US-PFIZER INC-2019162679

PATIENT
  Age: 71 Year
  Sex: Female
  Weight: 108.84 kg

DRUGS (14)
  1. GABAPENTIN. [Suspect]
     Active Substance: GABAPENTIN
     Indication: NEUROPATHY PERIPHERAL
     Dosage: 900 MG, UNK
     Dates: start: 201608, end: 201803
  2. NORTRIPTYLINE [Concomitant]
     Active Substance: NORTRIPTYLINE
     Indication: NEURALGIA
  3. COMPLEX B [VITAMIN B COMPLEX] [Concomitant]
     Indication: NEUROPATHY PERIPHERAL
     Dosage: 1 TABLET, DAILY
     Route: 048
  4. NORTRIPTYLINE [Concomitant]
     Active Substance: NORTRIPTYLINE
     Indication: SLEEP DISORDER
  5. GLUCOSAMINE CHONDROITIN [CHONDROITIN SULFATE;GLUCOSAMINE SULFATE] [Concomitant]
     Indication: ARTHRALGIA
     Dosage: 2 TABLETS, DAILY
     Route: 048
  6. OMEPRAZOLE. [Concomitant]
     Active Substance: OMEPRAZOLE
     Indication: BARRETT^S OESOPHAGUS
     Dosage: 20 MG, ALTERNATE DAY
  7. NORTRIPTYLINE [Concomitant]
     Active Substance: NORTRIPTYLINE
     Indication: NEUROPATHY PERIPHERAL
     Dosage: 25 MG, 1X/DAY (AT NIGHT)
     Route: 048
  8. TURMERIC [CURCUMA LONGA] [Concomitant]
     Indication: INFLAMMATION
     Dosage: 500 MG, 1X/DAY
     Route: 048
  9. TEMAZEPAM. [Concomitant]
     Active Substance: TEMAZEPAM
     Indication: SLEEP DISORDER
     Dosage: 15 MG, 1X/DAY (AT NIGHT)
     Route: 048
  10. VITAMIN B12 [Concomitant]
     Active Substance: CYANOCOBALAMIN
     Dosage: 1 TABLET, DAILY
     Route: 048
  11. VITAMIN D3 [Concomitant]
     Active Substance: CHOLECALCIFEROL
     Indication: BONE DENSITY ABNORMAL
     Dosage: 1 PILL, DAILY
     Route: 048
  12. VITAMIN C [Concomitant]
     Active Substance: ASCORBIC ACID
     Indication: NASOPHARYNGITIS
     Dosage: 500 MG, 1X/DAY
     Route: 048
  13. DULCOLAX (BISACODYL) [Concomitant]
     Active Substance: BISACODYL
     Indication: ABNORMAL FAECES
     Dosage: 2 GEL CPAS, 1X/DAY (AT NIGHT)
     Route: 048
     Dates: start: 2014
  14. ESTRACE [Concomitant]
     Active Substance: ESTRADIOL
     Indication: ATROPHY
     Dosage: UNK, 2X/WEEK (APPLIES CREAM TWICE A WEEK)
     Route: 061

REACTIONS (3)
  - Rash [Not Recovered/Not Resolved]
  - Drug ineffective for unapproved indication [Unknown]
  - Off label use [Unknown]

NARRATIVE: CASE EVENT DATE: 201803
